FAERS Safety Report 10486471 (Version 3)
Quarter: 2014Q4

REPORT INFORMATION
  Report Type: Spontaneous
  Country: FR (occurrence: None)
  Receive Date: 20140929
  Receipt Date: 20141023
  Transmission Date: 20150528
  Serious: Yes (Disabling)
  Sender: FDA-Public Use
  Company Number: 2014FR008254

PATIENT
  Age: 61 Year
  Sex: Male
  Weight: 89 kg

DRUGS (3)
  1. ELIGARD [Suspect]
     Active Substance: LEUPROLIDE ACETATE
     Indication: PROSTATE CANCER
     Route: 058
     Dates: end: 20140827
  2. ELIGARD [Suspect]
     Active Substance: LEUPROLIDE ACETATE
     Indication: PROSTATE CANCER
  3. EDEX [Concomitant]
     Active Substance: ALPROSTADIL

REACTIONS (10)
  - Foreign body [None]
  - Drug ineffective [None]
  - Injection site induration [None]
  - Injection site inflammation [None]
  - Wrong technique in drug usage process [None]
  - Injection site pain [None]
  - Product reconstitution issue [None]
  - Product quality issue [None]
  - Incorrect product storage [None]
  - Abscess [None]

NARRATIVE: CASE EVENT DATE: 20140827
